FAERS Safety Report 10407229 (Version 2)
Quarter: 2015Q3

REPORT INFORMATION
  Report Type: Other
  Country: IT (occurrence: IT)
  Receive Date: 20140825
  Receipt Date: 20150901
  Transmission Date: 20151125
  Serious: Yes (Hospitalization)
  Sender: FDA-Public Use
  Company Number: IT-NOVEN-14IT010087

PATIENT
  Age: 27 Year
  Sex: Male

DRUGS (2)
  1. PAROXETINE [Suspect]
     Active Substance: PAROXETINE\PAROXETINE HYDROCHLORIDE
     Indication: DRUG ABUSE
     Dosage: 28 DF, TOTAL (20 MG TABLETS)
     Route: 048
     Dates: start: 20140401, end: 20140401
  2. EN [Concomitant]
     Active Substance: DELORAZEPAM
     Indication: DRUG ABUSE
     Dosage: 20 DF, TOTAL (1 MG TABLETS)
     Route: 048
     Dates: start: 20140401, end: 20140401

REACTIONS (2)
  - Drug abuse [Unknown]
  - Feeling jittery [Unknown]

NARRATIVE: CASE EVENT DATE: 20140401
